FAERS Safety Report 8674584 (Version 4)
Quarter: 2013Q2

REPORT INFORMATION
  Report Type: Report from Study
  Country: BR (occurrence: BR)
  Receive Date: 20120720
  Receipt Date: 20130530
  Transmission Date: 20140414
  Serious: Yes (Hospitalization)
  Sender: FDA-Public Use
  Company Number: BR-US-EMD SERONO, INC.-7147555

PATIENT
  Age: 15 Year
  Sex: Female

DRUGS (1)
  1. REBIF [Suspect]
     Indication: RELAPSING-REMITTING MULTIPLE SCLEROSIS
     Dates: start: 20120203

REACTIONS (11)
  - Musculoskeletal stiffness [Recovered/Resolved]
  - Dysarthria [Recovered/Resolved]
  - Balance disorder [Recovered/Resolved]
  - Dyskinesia [Recovered/Resolved]
  - Central nervous system lesion [Recovered/Resolved]
  - Vision blurred [Unknown]
  - Nausea [Unknown]
  - Pain [Unknown]
  - Headache [Unknown]
  - Chills [Unknown]
  - Drug ineffective [Unknown]
